FAERS Safety Report 10983773 (Version 1)
Quarter: 2015Q2

REPORT INFORMATION
  Report Type: Spontaneous
  Country: US (occurrence: None)
  Receive Date: 20150401
  Receipt Date: 20150401
  Transmission Date: 20150821
  Serious: Yes (Other)
  Sender: FDA-Public Use
  Company Number: 001885425A

PATIENT
  Age: 56 Year
  Sex: Female

DRUGS (6)
  1. METOPROLOL [Concomitant]
     Active Substance: METOPROLOL
  2. TYLENOL PRN [Concomitant]
  3. MEANINGFUL BEAUTY DAY CREAM SPF 20 [Suspect]
     Active Substance: AVOBENZONE\OCTINOXATE\OCTISALATE\OXYBENZONE
     Route: 061
     Dates: start: 20150123, end: 20150210
  4. MEANINGFUL BEAUTY WELLNESS [Concomitant]
  5. MEANINGFUL BEAUTY CINDY CRAWFORD SKIN BRIGHTENING DECOLLETE AND NECK TREATMENT SPF 15 [Suspect]
     Active Substance: AVOBENZONE\OCTINOXATE\OCTISALATE\OXYBENZONE
     Route: 061
     Dates: start: 20150123, end: 20150210
  6. BAYER ASA [Concomitant]

REACTIONS (5)
  - Throat tightness [None]
  - Choking sensation [None]
  - Sensation of foreign body [None]
  - Application site erythema [None]
  - Dysphagia [None]

NARRATIVE: CASE EVENT DATE: 20150123
